FAERS Safety Report 5331194-1 (Version None)
Quarter: 2007Q2

REPORT INFORMATION
  Report Type: 
  Country: None (occurrence: None)
  Receive Date: 20070301
  Receipt Date: 20061024
  Transmission Date: 20071010
  Serious: No
  Sender: FDA-Public Use
  Company Number: 3391

PATIENT
  Age: 16 Year
  Sex: Male

DRUGS (2)
  1. AMNESTEEM [Suspect]
     Indication: ACNE
     Dosage: 40 MG, QAM, 20MG, QPM PO
     Route: 048
     Dates: start: 20060720, end: 20060723
  2. ASPIRIN [Concomitant]

REACTIONS (2)
  - JOINT SWELLING [None]
  - URTICARIA [None]
